FAERS Safety Report 10278385 (Version 1)
Quarter: 2014Q3

REPORT INFORMATION
  Report Type: Spontaneous
  Country: AT (occurrence: AT)
  Receive Date: 20140704
  Receipt Date: 20140704
  Transmission Date: 20150326
  Serious: Yes (Disabling)
  Sender: FDA-Public Use
  Company Number: AT-AMGEN INC.-AUTSP2014049411

PATIENT
  Age: 48 Year
  Sex: Male
  Weight: 113 kg

DRUGS (1)
  1. NEUPOGEN [Suspect]
     Active Substance: FILGRASTIM
     Indication: STEM CELL TRANSPLANT
     Dosage: 1 DF (48 MIO E./0.5 ML), 2 TIMES IN 1 DAY
     Route: 058
     Dates: start: 20130224, end: 20130227

REACTIONS (1)
  - Carcinoma in situ of skin [Recovered/Resolved with Sequelae]

NARRATIVE: CASE EVENT DATE: 201309
